FAERS Safety Report 9806326 (Version 2)
Quarter: 2014Q1

REPORT INFORMATION
  Report Type: Spontaneous
  Country: US (occurrence: US)
  Receive Date: 20140109
  Receipt Date: 20140325
  Transmission Date: 20141002
  Serious: Yes (Death)
  Sender: FDA-Public Use
  Company Number: US-BRISTOL-MYERS SQUIBB COMPANY-19963149

PATIENT
  Age: 74 Year
  Sex: Female

DRUGS (1)
  1. GLUCOPHAGE XR TABS 500 MG [Suspect]
     Dates: start: 2013

REACTIONS (1)
  - Death [Fatal]
